FAERS Safety Report 8901098 (Version 1)
Quarter: 2012Q4

REPORT INFORMATION
  Report Type: 
  Country: FR (occurrence: FR)
  Receive Date: 20121109
  Receipt Date: 20121109
  Transmission Date: 20130627
  Serious: Yes (Hospitalization)
  Sender: FDA-Public Use
  Company Number: FR-BRISTOL-MYERS SQUIBB COMPANY-17087818

PATIENT
  Age: 88 Year
  Sex: Male

DRUGS (8)
  1. COUMADIN TABS 2 MG [Suspect]
     Indication: ATRIAL FIBRILLATION
     Dosage: Interrupted on 06Oct12 and resumed at dose of 4mg/d on 10Oct12
     Route: 048
  2. INSULATARD [Concomitant]
     Dosage: 1 df = 44 units on morning and 8 units on evening
  3. DIGOXIN [Concomitant]
     Dosage: 1DF: 0.25 UNS 1 tablet on morning
  4. FUROSEMIDE [Concomitant]
     Dosage: 1 tablet on morning
  5. PRAVASTATIN SODIUM [Concomitant]
     Dosage: 1 tablet on evening
  6. RAMIPRIL [Concomitant]
     Dosage: 1 tablet on morning and on evening
  7. VITAMIN B1 + B6 [Concomitant]
     Dosage: Bayer 1 tablet on morning, midday, and on evening
  8. PARACETAMOL [Concomitant]

REACTIONS (2)
  - Lung disorder [Recovered/Resolved]
  - Haemoptysis [Recovered/Resolved]
